FAERS Safety Report 9479486 (Version 1)
Quarter: 2013Q3

REPORT INFORMATION
  Report Type: Report from Study
  Country: JP (occurrence: JP)
  Receive Date: 20130827
  Receipt Date: 20130827
  Transmission Date: 20140515
  Serious: Yes (Hospitalization, Other)
  Sender: FDA-Public Use
  Company Number: JP-ABBOTT-13P-087-1138623-00

PATIENT
  Age: 15 Year
  Sex: Male
  Weight: 48 kg

DRUGS (5)
  1. HUMIRA [Suspect]
     Indication: CROHN^S DISEASE
     Route: 058
     Dates: start: 20121222, end: 20121222
  2. HUMIRA [Suspect]
     Dates: start: 20130104, end: 20130104
  3. HUMIRA [Suspect]
     Dates: start: 20130118, end: 20130303
  4. MERCAPTOPURINE HYDRATE [Concomitant]
     Indication: CROHN^S DISEASE
     Route: 048
  5. MESALAZINE [Concomitant]
     Indication: CROHN^S DISEASE
     Route: 048

REACTIONS (2)
  - Injury [Unknown]
  - Fracture [Recovered/Resolved]
